FAERS Safety Report 8457344-6 (Version None)
Quarter: 2012Q2

REPORT INFORMATION
  Report Type: 
  Country: None (occurrence: None)
  Receive Date: 20120621
  Receipt Date: 20120618
  Transmission Date: 20120825
  Serious: Yes (Death)
  Sender: FDA-Public Use
  Company Number: AU-BAXTER-2012BAX009146

PATIENT
  Sex: Male

DRUGS (7)
  1. DIANEAL [Suspect]
     Indication: PERITONEAL DIALYSIS
     Route: 033
  2. EXTRANEAL [Suspect]
     Dates: end: 20120616
  3. DIANEAL [Suspect]
     Indication: PERITONEAL DIALYSIS
     Route: 033
  4. EXTRANEAL [Suspect]
     Dates: end: 20120616
  5. DIANEAL [Suspect]
     Indication: PERITONEAL DIALYSIS
     Route: 033
  6. EXTRANEAL [Suspect]
     Dates: end: 20120616
  7. EXTRANEAL [Suspect]
     Indication: PERITONEAL DIALYSIS
     Route: 033
     Dates: end: 20120616

REACTIONS (1)
  - DEATH [None]
